FAERS Safety Report 15756019 (Version 1)
Quarter: 2018Q4

REPORT INFORMATION
  Report Type: Other
  Country: HR (occurrence: HR)
  Receive Date: 20181224
  Receipt Date: 20181224
  Transmission Date: 20190205
  Serious: Yes (Hospitalization)
  Sender: FDA-Public Use
  Company Number: HR-CELLTRION INC.-2018HR024627

PATIENT

DRUGS (6)
  1. REMSIMA [Suspect]
     Active Substance: INFLIXIMAB
     Indication: COLITIS ULCERATIVE
     Dosage: 300 MG, DAILY
     Route: 041
     Dates: start: 20181030, end: 20181030
  2. SALOFALK                           /00747601/ [Concomitant]
     Active Substance: MESALAMINE
     Dosage: 4 G
     Route: 054
  3. SALOFALK                           /00747601/ [Concomitant]
     Active Substance: MESALAMINE
     Indication: COLITIS ULCERATIVE
     Dosage: 3000 MG, DAILY
     Route: 048
  4. IMURAN [Concomitant]
     Active Substance: AZATHIOPRINE
     Indication: COLITIS ULCERATIVE
     Dosage: 50 MG, DAILY
     Route: 048
  5. CONTROLOC                          /01263204/ [Concomitant]
     Dosage: 80 MG, DAILY
     Route: 048
  6. SALOFALK                           /00747601/ [Concomitant]
     Active Substance: MESALAMINE
     Dosage: 500 MG; SUPPOSITORIES
     Route: 054

REACTIONS (12)
  - Dysgeusia [Unknown]
  - Arthralgia [Unknown]
  - Asthenia [Unknown]
  - Headache [Recovering/Resolving]
  - Malaise [Unknown]
  - Myalgia [Unknown]
  - Vomiting [Recovered/Resolved]
  - Chills [Unknown]
  - Dysaesthesia [Unknown]
  - Nausea [Unknown]
  - Hemianaesthesia [Unknown]
  - Pyrexia [Unknown]

NARRATIVE: CASE EVENT DATE: 20181031
